FAERS Safety Report 9274426 (Version 1)
Quarter: 2013Q2

REPORT INFORMATION
  Report Type: Report from Study
  Country: US (occurrence: US)
  Receive Date: 20130506
  Receipt Date: 20130506
  Transmission Date: 20140414
  Serious: Yes (Death, Life-Threatening, Hospitalization)
  Sender: FDA-Public Use
  Company Number: US-009507513-1112USA00869

PATIENT
  Age: 65 Year
  Sex: Male
  Weight: 69.9 kg

DRUGS (17)
  1. VORINOSTAT [Suspect]
     Indication: ACUTE MYELOID LEUKAEMIA
     Dosage: DAYS 1 TO 9
     Route: 048
     Dates: start: 20110823, end: 20110831
  2. VORINOSTAT [Suspect]
     Dosage: 400 UNK, UNK
     Route: 048
     Dates: start: 20111025, end: 20111102
  3. MYLOTARG [Suspect]
     Indication: ACUTE MYELOID LEUKAEMIA
     Dosage: OVER 2H ON DAY4 AND DAY8
     Route: 042
     Dates: start: 20110826, end: 20110826
  4. MYLOTARG [Suspect]
     Dosage: OVER 2H ON DAY4 AND DAY8
     Route: 042
     Dates: start: 20110830, end: 20110830
  5. MYLOTARG [Suspect]
     Dosage: OVER 2H ON DAY4 AND DAY8
     Route: 042
     Dates: start: 20111031, end: 20111031
  6. VIDAZA [Suspect]
     Indication: ACUTE MYELOID LEUKAEMIA
     Dosage: 75 MG/M2, QD
     Route: 042
     Dates: start: 20111025, end: 20111030
  7. VIDAZA [Suspect]
     Dosage: 75 MG/M2, QD
     Route: 042
     Dates: start: 20110823, end: 20110829
  8. ACYCLOVIR [Concomitant]
  9. CEFTAZIDIME [Concomitant]
  10. DOCUSATE SODIUM [Concomitant]
  11. FENTANYL [Concomitant]
  12. LEVOFLOXACIN [Concomitant]
  13. METRONIDAZOLE [Concomitant]
  14. SENNA [Concomitant]
  15. VORICONAZOLE [Concomitant]
  16. ACETAMINOPHEN [Concomitant]
  17. OXYCODONE [Concomitant]

REACTIONS (4)
  - Sepsis [Fatal]
  - Febrile neutropenia [Unknown]
  - Respiratory failure [Unknown]
  - Pneumonitis [Unknown]
